FAERS Safety Report 9128859 (Version 1)
Quarter: 2013Q1

REPORT INFORMATION
  Report Type: Spontaneous
  Country: US (occurrence: US)
  Receive Date: 20130228
  Receipt Date: 20130228
  Transmission Date: 20140127
  Serious: No
  Sender: FDA-Public Use
  Company Number: US-ABBOTT-12P-163-1029348-00

PATIENT
  Sex: Male

DRUGS (5)
  1. ANDROGEL [Suspect]
     Indication: PRODUCT USED FOR UNKNOWN INDICATION
     Dosage: 2 PUMPS
     Route: 061
  2. ANDROGEL [Suspect]
     Dosage: 4 PUMPS
     Route: 061
  3. ACE INHIBITORS [Concomitant]
     Indication: PRODUCT USED FOR UNKNOWN INDICATION
  4. NAPROSYN [Concomitant]
     Indication: PRODUCT USED FOR UNKNOWN INDICATION
  5. SOMA [Concomitant]
     Indication: BACK PAIN
     Dosage: OCCASIONALLY

REACTIONS (1)
  - Blood testosterone decreased [Not Recovered/Not Resolved]
